FAERS Safety Report 20930069 (Version 2)
Quarter: 2022Q3

REPORT INFORMATION
  Report Type: Report from Study
  Country: JP (occurrence: JP)
  Receive Date: 20220608
  Receipt Date: 20220722
  Transmission Date: 20221026
  Serious: Yes (Death, Other)
  Sender: FDA-Public Use
  Company Number: JP-NOVARTISPH-NVSJ2022JP091274

PATIENT
  Age: 60 Year
  Sex: Female
  Weight: 46 kg

DRUGS (18)
  1. MEKINIST [Suspect]
     Active Substance: TRAMETINIB DIMETHYL SULFOXIDE
     Indication: Pancreatic carcinoma
     Dosage: 2 MG, QD
     Route: 048
     Dates: start: 20210929, end: 20211026
  2. LORAZEPAM [Concomitant]
     Active Substance: LORAZEPAM
     Indication: Autonomic nervous system imbalance
     Dosage: 0.5 MG, QD
     Route: 048
     Dates: start: 20210929, end: 20211126
  3. PANCRELIPASE [Concomitant]
     Active Substance: PANCRELIPASE
     Indication: Pancreatic failure
     Dosage: 150 MG, 6QD
     Route: 048
     Dates: start: 20210929, end: 20211126
  4. LANSOPRAZOLE [Concomitant]
     Active Substance: LANSOPRAZOLE
     Indication: Gastritis
     Dosage: 10 MG, QD
     Route: 048
     Dates: start: 20210929, end: 20211126
  5. BROTIZOLAM [Concomitant]
     Active Substance: BROTIZOLAM
     Indication: Insomnia
     Dosage: 0.25 MG, QD
     Route: 048
     Dates: start: 20210929, end: 20211126
  6. APIDRA [Concomitant]
     Active Substance: INSULIN GLULISINE
     Indication: Type 1 diabetes mellitus
     Dosage: 34 IU (12-12-10 UNITS)
     Route: 058
     Dates: start: 20211028, end: 20211116
  7. LANTUS [Concomitant]
     Active Substance: INSULIN GLARGINE
     Indication: Type 1 diabetes mellitus
     Dosage: 7 IU, QD
     Route: 058
     Dates: start: 20210929, end: 20211126
  8. TAPENTADOL HYDROCHLORIDE [Concomitant]
     Active Substance: TAPENTADOL HYDROCHLORIDE
     Indication: Cancer pain
     Dosage: 25 MG, BID
     Route: 048
     Dates: start: 20211001, end: 20211005
  9. NOVAMIN [Concomitant]
     Indication: Nausea
     Dosage: 5 MG, TID
     Route: 048
     Dates: start: 20211001, end: 20211005
  10. LOXOPROFEN SODIUM [Concomitant]
     Active Substance: LOXOPROFEN SODIUM
     Indication: Cancer pain
     Dosage: 60 MG, TID
     Route: 048
     Dates: start: 20211001, end: 20211005
  11. FENTANYL [Concomitant]
     Active Substance: FENTANYL
     Indication: Cancer pain
     Dosage: 0.5 G, QD
     Route: 062
     Dates: start: 20211002, end: 20211006
  12. PEROSPIRONE HYDROCHLORIDE [Concomitant]
     Active Substance: PEROSPIRONE HYDROCHLORIDE
     Indication: Nausea
     Dosage: 4 MG, QD
     Route: 048
     Dates: start: 20211007, end: 20211019
  13. BIFIDOBACTERIUM SPP. [Concomitant]
     Active Substance: BIFIDOBACTERIUM SPP.
     Indication: Diarrhoea
     Dosage: 0.5 MG, QD
     Route: 048
     Dates: start: 20211012, end: 20211019
  14. ACETAMINOPHEN [Concomitant]
     Active Substance: ACETAMINOPHEN
     Indication: Pain
     Dosage: 400 MG, PRN
     Route: 048
     Dates: start: 20211004, end: 20211116
  15. METOCLOPRAMIDE [Concomitant]
     Active Substance: METOCLOPRAMIDE
     Indication: Nausea
     Dosage: 5 MG, PRN
     Route: 048
     Dates: start: 20211006, end: 20211116
  16. TRAVELMIN [Concomitant]
     Indication: Nausea
     Dosage: 1 DOSAGE FORM, PRN
     Route: 048
     Dates: start: 20211002, end: 20211116
  17. OXINORM [Concomitant]
     Indication: Pain
     Dosage: 2.5 MG, PRN
     Route: 048
     Dates: start: 20211001, end: 20211116
  18. LOCOID [Concomitant]
     Active Substance: HYDROCORTISONE BUTYRATE
     Indication: Eczema
     Dosage: ADEQUATE DOSE
     Route: 062
     Dates: start: 20211019, end: 20211026

REACTIONS (14)
  - Pancreatic carcinoma [Fatal]
  - Malignant neoplasm progression [Fatal]
  - Metastases to liver [Fatal]
  - Ascites [Fatal]
  - Oedema peripheral [Fatal]
  - Cachexia [Fatal]
  - Pulmonary embolism [Recovering/Resolving]
  - Dyspnoea exertional [Unknown]
  - Hypoalbuminaemia [Not Recovered/Not Resolved]
  - Concomitant disease aggravated [Not Recovered/Not Resolved]
  - Dermatitis acneiform [Not Recovered/Not Resolved]
  - Nausea [Unknown]
  - Diarrhoea [Unknown]
  - Eczema [Unknown]

NARRATIVE: CASE EVENT DATE: 20211005
